FAERS Safety Report 8866334 (Version 3)
Quarter: 2012Q4

REPORT INFORMATION
  Report Type: 
  Country: CO (occurrence: CO)
  Receive Date: 20121025
  Receipt Date: 20121206
  Transmission Date: 20130627
  Serious: Yes (Other)
  Sender: FDA-Public Use
  Company Number: CO-ROCHE-1149171

PATIENT
  Age: 83 Year
  Sex: Female

DRUGS (6)
  1. LUCENTIS [Suspect]
     Indication: VISUAL IMPAIRMENT
     Dosage: dose: 2 df
     Route: 050
     Dates: start: 20120306
  2. LOSARTAN [Concomitant]
  3. OMEPRAZOLE [Concomitant]
  4. AMLODIPINE [Concomitant]
  5. INSULIN [Concomitant]
  6. INSULIN [Concomitant]

REACTIONS (2)
  - Tibia fracture [Recovering/Resolving]
  - Road traffic accident [Unknown]
